FAERS Safety Report 5484693-6 (Version None)
Quarter: 2007Q4

REPORT INFORMATION
  Report Type: 
  Country: None (occurrence: None)
  Receive Date: 20071010
  Receipt Date: 20070927
  Transmission Date: 20080405
  Serious: Yes (Other)
  Sender: FDA-Public Use
  Company Number: 019243

PATIENT
  Age: 44 Year
  Sex: Female

DRUGS (10)
  1. MEPERIDINE HCL [Suspect]
     Indication: PAIN
     Dosage: 230 MG TOTAL OVER 8 HOURS, PARENTERAL
     Route: 051
  2. CITALOPRAM HYDROBROMIDE [Suspect]
     Indication: DEPRESSION
     Dosage: 20 MG, QD INCREASED TO 40 MG QD, ORAL
     Route: 048
  3. HYDROMORPHONE HCL [Concomitant]
  4. HYDROCODONE BITARTRATE + ACETAMINOPHEN [Concomitant]
  5. PROMETHAZINE [Concomitant]
  6. GATIFLOXACIN [Concomitant]
  7. ZOLPIDEM TARTRATE [Concomitant]
  8. LANSOPRAZOLE [Concomitant]
  9. ENOXAPARIN SODIUM [Concomitant]
  10. FENTANYL [Concomitant]

REACTIONS (9)
  - BREAKTHROUGH PAIN [None]
  - DISORIENTATION [None]
  - ILLUSION [None]
  - PARANOIA [None]
  - PLATELET COUNT INCREASED [None]
  - RESPIRATORY RATE INCREASED [None]
  - SEROTONIN SYNDROME [None]
  - WHITE BLOOD CELL COUNT INCREASED [None]
  - WOUND INFECTION [None]
